FAERS Safety Report 9500293 (Version 1)
Quarter: 2013Q3

REPORT INFORMATION
  Report Type: Spontaneous
  Country: RO (occurrence: RO)
  Receive Date: 20130905
  Receipt Date: 20130905
  Transmission Date: 20140515
  Serious: Yes (Life-Threatening, Hospitalization, Other)
  Sender: FDA-Public Use
  Company Number: RO-ROXANE LABORATORIES, INC.-2013-RO-01458RO

PATIENT
  Age: 57 Year
  Sex: Female

DRUGS (6)
  1. PREDNISONE [Suspect]
     Indication: GLOMERULONEPHRITIS MEMBRANOPROLIFERATIVE
     Dosage: 50 MG
     Dates: end: 201004
  2. AMLODIPINE [Suspect]
     Indication: HYPERTENSION
  3. FUROSEMIDE [Suspect]
  4. INSULIN [Suspect]
     Indication: DIABETES MELLITUS
  5. SPIRONOLACTONE [Suspect]
  6. ALBUMIN [Suspect]

REACTIONS (15)
  - Strongyloidiasis [Recovered/Resolved]
  - Diabetes mellitus [Unknown]
  - Acute tonsillitis [Unknown]
  - Nephrotic syndrome [Unknown]
  - Proteinuria [Unknown]
  - Hypoglycaemia [Unknown]
  - Loss of consciousness [Unknown]
  - General physical health deterioration [Unknown]
  - Oliguria [Unknown]
  - Generalised oedema [Unknown]
  - Hypoproteinaemia [Unknown]
  - Alkalosis [Recovered/Resolved]
  - Hypokalaemia [Recovered/Resolved]
  - Gastrointestinal haemorrhage [Unknown]
  - Shock haemorrhagic [Unknown]
